FAERS Safety Report 8762274 (Version 1)
Quarter: 2012Q4

REPORT INFORMATION
  Report Type: 
  Country: CN (occurrence: CN)
  Receive Date: 20120830
  Receipt Date: 20120830
  Transmission Date: 20130627
  Serious: Yes (Hospitalization, Other)
  Sender: FDA-Public Use
  Company Number: CN-ROCHE-1111489

PATIENT
  Sex: Male
  Weight: 73 kg

DRUGS (1)
  1. CELLCEPT [Suspect]
     Indication: RENAL TRANSPLANT
     Route: 048
     Dates: start: 20090601, end: 20090923

REACTIONS (2)
  - Bone marrow failure [Recovered/Resolved]
  - Interstitial lung disease [Unknown]
